FAERS Safety Report 23591448 (Version 3)
Quarter: 2024Q1

REPORT INFORMATION
  Report Type: Spontaneous
  Country: CA (occurrence: CA)
  Receive Date: 20240304
  Receipt Date: 20240312
  Transmission Date: 20240409
  Serious: Yes (Other)
  Sender: FDA-Public Use
  Company Number: CA-BAUSCH-BL-2024-002899

PATIENT
  Age: 23 Year
  Sex: Male

DRUGS (11)
  1. ALDARA [Suspect]
     Active Substance: IMIQUIMOD
     Indication: Skin papilloma
     Dosage: APPLIED 5 DAYS PER WEEK FOR 10 WEEKS
     Route: 061
  2. SALICYLIC ACID [Suspect]
     Active Substance: SALICYLIC ACID
     Indication: Skin papilloma
     Dosage: CRYOTHERAPY (PREPARATION OF 40% SALICYLIC ACID IN PETROLATUM)
     Route: 065
  3. CANTHARIDIN\PODOPHYLLUM\SALICYLIC ACID [Suspect]
     Active Substance: CANTHARIDIN\PODOPHYLLUM\SALICYLIC ACID
     Indication: Skin papilloma
     Dosage: CANTHARIDIN 1%, PODOPHYLLIN 5%, AND SALICYLIC ACID 30%
     Route: 065
  4. CIMETIDINE [Suspect]
     Active Substance: CIMETIDINE
     Indication: Skin papilloma
     Dosage: 3-MONTH TRIAL
     Route: 065
  5. DINITROCHLOROBENZENE [Suspect]
     Active Substance: DINITROCHLOROBENZENE
     Indication: Skin papilloma
     Dosage: TWO 2-MONTH CYCLES
     Route: 065
  6. BLEOMYCIN [Suspect]
     Active Substance: BLEOMYCIN SULFATE
     Indication: Skin papilloma
     Dosage: TWO CYCLES
     Route: 026
  7. ACITRETIN [Suspect]
     Active Substance: ACITRETIN
     Indication: Skin papilloma
     Route: 065
  8. RAPAMYCIN [Suspect]
     Active Substance: SIROLIMUS
     Indication: Skin papilloma
     Route: 065
  9. CIDOFOVIR [Suspect]
     Active Substance: CIDOFOVIR
     Indication: Skin papilloma
     Dosage: 5 DAYS PER WEEK
     Route: 061
  10. MYCOPHENOLATE MOFETIL [Concomitant]
     Active Substance: MYCOPHENOLATE MOFETIL
     Indication: Immunosuppression
     Dosage: CELLCEPT
     Route: 065
  11. PREDNISONE [Concomitant]
     Active Substance: PREDNISONE
     Indication: Immunosuppression
     Route: 065

REACTIONS (1)
  - Multiple-drug resistance [Unknown]
